FAERS Safety Report 12311984 (Version 3)
Quarter: 2016Q2

REPORT INFORMATION
  Report Type: Report from Study
  Country: MX (occurrence: MX)
  Receive Date: 20160427
  Receipt Date: 20160526
  Transmission Date: 20160815
  Serious: Yes (Other)
  Sender: FDA-Public Use
  Company Number: PHHY2016MX056296

PATIENT
  Sex: Female

DRUGS (3)
  1. OLANZAPINE. [Concomitant]
     Active Substance: OLANZAPINE
     Indication: SLEEP DISORDER
     Dosage: 0.25 DF, QD (AT NIGHT)
     Route: 048
  2. TENORMIN [Concomitant]
     Active Substance: ATENOLOL
     Indication: BLOOD PRESSURE ABNORMAL
     Dosage: 0.5 DF (50 MG), BID (? AT NIGHT AND ? IN THE MORNING)
     Route: 048
  3. CO-DIOVAN [Suspect]
     Active Substance: HYDROCHLOROTHIAZIDE\VALSARTAN
     Indication: HYPERTENSION
     Dosage: 1 DF (HYDROCHLOROTHIAZIDE 12.5 MG, VALSARTAN 80 MG), QD
     Route: 048

REACTIONS (7)
  - Hypoaesthesia [Recovering/Resolving]
  - Blood glucose increased [Recovering/Resolving]
  - Infarction [Recovering/Resolving]
  - Angina pectoris [Not Recovered/Not Resolved]
  - Diabetes mellitus [Unknown]
  - Blood cholesterol increased [Unknown]
  - Blood triglycerides increased [Unknown]
